FAERS Safety Report 5649131-9 (Version None)
Quarter: 2008Q1

REPORT INFORMATION
  Report Type: 
  Country: None (occurrence: None)
  Receive Date: 20080131
  Receipt Date: 20071003
  Transmission Date: 20080703
  Serious: Yes (Hospitalization)
  Sender: FDA-Public Use
  Company Number: US200710000861

PATIENT
  Age: 77 Year
  Sex: Male

DRUGS (2)
  1. BYETTA [Suspect]
     Dates: end: 20070901
  2. ANTI-DIABETICS [Concomitant]

REACTIONS (1)
  - DEHYDRATION [None]
